FAERS Safety Report 5278725-8 (Version None)
Quarter: 2007Q1

REPORT INFORMATION
  Report Type: 
  Country: None (occurrence: None)
  Receive Date: 20061213
  Receipt Date: 20050518
  Transmission Date: 20070707
  Serious: No
  Sender: FDA-Public Use
  Company Number: 2005UW06154

PATIENT
  Age: 49 Year
  Sex: Male
  Weight: 95.254 kg

DRUGS (16)
  1. SEROQUEL [Suspect]
     Indication: BIPOLAR DISORDER
     Dosage: 300 MG QAM PO
     Route: 048
  2. SEROQUEL [Suspect]
     Indication: BORDERLINE PERSONALITY DISORDER
     Dosage: 300 MG QAM PO
     Route: 048
  3. SEROQUEL [Suspect]
     Indication: POST-TRAUMATIC STRESS DISORDER
     Dosage: 300 MG QAM PO
     Route: 048
  4. SEROQUEL [Suspect]
     Indication: BIPOLAR DISORDER
     Dosage: 600 MG HS PO
     Route: 048
  5. SEROQUEL [Suspect]
     Indication: BORDERLINE PERSONALITY DISORDER
     Dosage: 600 MG HS PO
     Route: 048
  6. SEROQUEL [Suspect]
     Indication: POST-TRAUMATIC STRESS DISORDER
     Dosage: 600 MG HS PO
     Route: 048
  7. KLONOPIN [Concomitant]
  8. GLUCOPHAGE [Concomitant]
  9. GLUCOTROL [Concomitant]
  10. ACTOS [Concomitant]
  11. LOPID [Concomitant]
  12. SYNTHROID [Concomitant]
  13. NORTRIPTYLINE HCL [Concomitant]
  14. RESTORIL [Concomitant]
  15. METHADONE HCL [Concomitant]
  16. ACTIQ [Concomitant]

REACTIONS (3)
  - BLOOD GLUCOSE INCREASED [None]
  - ELECTROCARDIOGRAM QT PROLONGED [None]
  - SEDATION [None]
